FAERS Safety Report 5869073-3 (Version None)
Quarter: 2008Q3

REPORT INFORMATION
  Report Type: 
  Country: None (occurrence: None)
  Receive Date: 20080903
  Receipt Date: 20080901
  Transmission Date: 20090109
  Serious: Yes (Other)
  Sender: FDA-Public Use
  Company Number: B0535400A

PATIENT
  Age: 43 Year
  Sex: Female

DRUGS (1)
  1. SEROXAT [Suspect]
     Indication: DRUG USE FOR UNKNOWN INDICATION
     Route: 048
     Dates: start: 20020201, end: 20040416

REACTIONS (14)
  - ABDOMINAL PAIN [None]
  - BACK PAIN [None]
  - DEPRESSED MOOD [None]
  - DISTURBANCE IN ATTENTION [None]
  - ESSENTIAL HYPERTENSION [None]
  - FATIGUE [None]
  - HEADACHE [None]
  - HYPERSENSITIVITY [None]
  - INFLUENZA [None]
  - INSOMNIA [None]
  - MEMORY IMPAIRMENT [None]
  - PAROSMIA [None]
  - PNEUMONIA [None]
  - WEIGHT INCREASED [None]
